FAERS Safety Report 17743671 (Version 6)
Quarter: 2021Q4

REPORT INFORMATION
  Report Type: Other
  Country: JP (occurrence: JP)
  Receive Date: 20200505
  Receipt Date: 20211105
  Transmission Date: 20220303
  Serious: Yes (Hospitalization)
  Sender: FDA-Public Use
  Company Number: JP-CHUGAI-A2020021541ROCHE

PATIENT
  Age: 80 Year
  Sex: Female

DRUGS (21)
  1. ATEZOLIZUMAB [Suspect]
     Active Substance: ATEZOLIZUMAB
     Indication: Non-small cell lung cancer
     Dosage: AMOUNT OF 1 ONCE ADMINISTRATION: 1200 (UNIT UNCERTAINTY) AND 1 COURSE AND DOSE  INTERVAL UNCERTAINTY
     Route: 041
     Dates: start: 20200414
  2. ATEZOLIZUMAB [Suspect]
     Active Substance: ATEZOLIZUMAB
     Dosage: TWO COURSES AND AMOUNTS OF 1 ONCE ADMINISTRATION: 1200 (UNIT UNCERTAINTY) AND DOSE INTERVAL UNCERTAI
     Route: 041
     Dates: start: 20200508
  3. ATEZOLIZUMAB [Suspect]
     Active Substance: ATEZOLIZUMAB
     Dosage: FOUR COURSES AND AMOUNTS OF 1 ONCE ADMINISTRATION: 1200 (UNIT UNCERTAINTY) AND DOSE INTERVAL UNCERTA
     Route: 041
     Dates: start: 20200623
  4. BEVACIZUMAB [Suspect]
     Active Substance: BEVACIZUMAB
     Indication: Non-small cell lung cancer
     Dosage: AMOUNT OF 1 ONCE ADMINISTRATION: 510 (UNIT UNCERTAINTY) AND 1 COURSE AND DOSE ?INTERVAL UNCERTAINTY
     Route: 041
     Dates: start: 20200414
  5. BEVACIZUMAB [Suspect]
     Active Substance: BEVACIZUMAB
     Dosage: TWO COURSES AND AMOUNTS OF 1 ONCE ADMINISTRATION: 510 (UNIT UNCERTAINTY) AND DOSE INTERVAL UNCERTAIN
     Route: 041
     Dates: start: 20200508
  6. BEVACIZUMAB [Suspect]
     Active Substance: BEVACIZUMAB
     Dosage: FOUR COURSES AND AMOUNTS OF 1 ONCE ADMINISTRATION: 510 (UNIT UNCERTAINTY) AND DOSE INTERVAL UNCERTAI
     Route: 041
     Dates: start: 20200623
  7. CARBOPLATIN [Suspect]
     Active Substance: CARBOPLATIN
     Indication: Non-small cell lung cancer
     Dosage: AMOUNT OF 1 ONCE ADMINISTRATION: 350 (UNIT UNCERTAINTY) AND 1 COURSE AND DOSE ?INTERVAL UNCERTAINTY
     Route: 041
     Dates: start: 20200414
  8. CARBOPLATIN [Suspect]
     Active Substance: CARBOPLATIN
     Dosage: TWO COURSES AND AMOUNTS OF 1 ONCE ADMINISTRATION: 350 (UNIT UNCERTAINTY) AND DOSE INTERVAL UNCERTAIN
     Route: 041
     Dates: start: 20200508
  9. CARBOPLATIN [Suspect]
     Active Substance: CARBOPLATIN
     Dosage: FOUR COURSES AND AMOUNTS OF 1 ONCE ADMINISTRATION: 350 (UNIT UNCERTAINTY) AND DOSE INTERVAL UNCERTAI
     Route: 041
     Dates: start: 20200623
  10. PACLITAXEL [Suspect]
     Active Substance: PACLITAXEL
     Indication: Non-small cell lung cancer
     Dosage: AMOUNT OF 1 ONCE ADMINISTRATION: 240 (UNIT UNCERTAINTY) AND 1 COURSE AND DOSE ?INTERVAL UNCERTAINTY
     Route: 041
     Dates: start: 20200414
  11. PACLITAXEL [Suspect]
     Active Substance: PACLITAXEL
     Dosage: TWO COURSES AND AMOUNTS OF 1 ONCE ADMINISTRATION: 240 (UNIT UNCERTAINTY) AND DOSE INTERVAL UNCERTAIN
     Route: 041
     Dates: start: 20200508
  12. PACLITAXEL [Suspect]
     Active Substance: PACLITAXEL
     Dosage: FOUR COURSES AND AMOUNTS OF 1 ONCE ADMINISTRATION: 240 (UNIT UNCERTAINTY) AND DOSE INTERVAL UNCERTAI
     Route: 041
     Dates: start: 20200623
  13. DILTIAZEM HYDROCHLORIDE [Concomitant]
     Active Substance: DILTIAZEM HYDROCHLORIDE
     Indication: Angina pectoris
     Route: 065
  14. PANCRELIPASE [Concomitant]
     Active Substance: PANCRELIPASE
     Indication: Gastric ulcer
     Dosage: DOSE INTERVAL UNCERTAINTY
     Route: 048
  15. TEPRENONE [Concomitant]
     Active Substance: TEPRENONE
     Indication: Gastric ulcer
     Dosage: DOSE INTERVAL UNCERTAINTY
     Route: 065
  16. FAMOTIDINE [Concomitant]
     Active Substance: FAMOTIDINE
     Indication: Diverticulum intestinal
     Dosage: DOSE INTERVAL UNCERTAINTY
     Route: 065
  17. LOSARTAN POTASSIUM [Concomitant]
     Active Substance: LOSARTAN POTASSIUM
     Indication: Hypertension
     Route: 065
  18. POLAPREZINC [Concomitant]
     Active Substance: POLAPREZINC
     Indication: Gastric ulcer
     Dosage: DOSE INTERVAL UNCERTAINTY
     Route: 065
     Dates: start: 20190912
  19. PRIMPERAN [Concomitant]
     Active Substance: METOCLOPRAMIDE HYDROCHLORIDE
     Indication: Nausea
     Route: 065
     Dates: start: 20190813
  20. CALONAL [Concomitant]
     Active Substance: ACETAMINOPHEN
     Indication: Pain
     Route: 065
     Dates: start: 20200417
  21. AMLODIPINE [Concomitant]
     Active Substance: AMLODIPINE BESYLATE
     Indication: Gastric ulcer
     Route: 048
     Dates: start: 20200608

REACTIONS (8)
  - Pleurisy [Recovering/Resolving]
  - Febrile neutropenia [Recovering/Resolving]
  - Peripheral sensory neuropathy [Unknown]
  - Constipation [Unknown]
  - Epistaxis [Unknown]
  - Proteinuria [Unknown]
  - Arthritis [Unknown]
  - Hypoaesthesia [Unknown]

NARRATIVE: CASE EVENT DATE: 20200423
